FAERS Safety Report 18534507 (Version 3)
Quarter: 2020Q4

REPORT INFORMATION
  Report Type: Spontaneous
  Country: IT (occurrence: IT)
  Receive Date: 20201123
  Receipt Date: 20201214
  Transmission Date: 20210114
  Serious: Yes (Hospitalization, Other)
  Sender: FDA-Public Use
  Company Number: IT-MYLANLABS-2020M1096289

PATIENT
  Age: 86 Year
  Sex: Male
  Weight: 74 kg

DRUGS (8)
  1. ASPIRIN                            /00002701/ [Concomitant]
     Active Substance: ASPIRIN
     Indication: PRODUCT USED FOR UNKNOWN INDICATION
     Dosage: 100 MILLIGRAM, QD
     Route: 065
  2. AMLODIPINE [Concomitant]
     Active Substance: AMLODIPINE BESYLATE
     Indication: PRODUCT USED FOR UNKNOWN INDICATION
     Dosage: 10 MILLIGRAM, QD
     Route: 065
  3. SIMVASTATIN. [Concomitant]
     Active Substance: SIMVASTATIN
     Indication: PRODUCT USED FOR UNKNOWN INDICATION
     Dosage: 40 MILLIGRAM, QD
     Route: 065
  4. HEPARIN [Suspect]
     Active Substance: HEPARIN SODIUM
     Indication: ANTICOAGULANT THERAPY
     Dosage: 5000 U BOLUS
     Route: 065
  5. FONDAPARINUX [Suspect]
     Active Substance: FONDAPARINUX
     Dosage: UNK UNK, QD (ONCE A DAY)
     Route: 065
  6. OMEPRAZOLE. [Concomitant]
     Active Substance: OMEPRAZOLE
     Indication: PRODUCT USED FOR UNKNOWN INDICATION
     Dosage: 20 MILLIGRAM, QD
     Route: 065
  7. FONDAPARINUX [Suspect]
     Active Substance: FONDAPARINUX
     Indication: HEPARIN-INDUCED THROMBOCYTOPENIA
     Dosage: 5 MILLIGRAM, QD
     Route: 065
  8. RAMIPRIL. [Concomitant]
     Active Substance: RAMIPRIL
     Indication: PRODUCT USED FOR UNKNOWN INDICATION
     Dosage: 5 MILLIGRAM, QD
     Route: 065

REACTIONS (6)
  - Autoimmune heparin-induced thrombocytopenia [Recovered/Resolved]
  - Off label use [Unknown]
  - Platelet count decreased [Unknown]
  - Deep vein thrombosis [Recovered/Resolved]
  - Drug ineffective for unapproved indication [Unknown]
  - Treatment failure [Unknown]
